FAERS Safety Report 18137526 (Version 4)
Quarter: 2020Q4

REPORT INFORMATION
  Report Type: Report from Study
  Country: ES (occurrence: ES)
  Receive Date: 20200811
  Receipt Date: 20201020
  Transmission Date: 20210113
  Serious: Yes (Death, Hospitalization, Other)
  Sender: FDA-Public Use
  Company Number: ES-BRISTOL-MYERS SQUIBB COMPANY-BMS-2020-062717

PATIENT
  Age: 61 Year
  Sex: Male
  Weight: 76.8 kg

DRUGS (2)
  1. BMS-986218. [Suspect]
     Active Substance: BMS-986218
     Indication: PANCREATIC CARCINOMA
     Dosage: 40 MILLIGRAM, Q4WK
     Route: 042
     Dates: start: 20200610
  2. NIVOLUMAB [Suspect]
     Active Substance: NIVOLUMAB
     Indication: PANCREATIC CARCINOMA
     Dosage: 480 MILLIGRAM, Q4WK
     Route: 042
     Dates: start: 20200610

REACTIONS (2)
  - Tumour necrosis [Not Recovered/Not Resolved]
  - Biliary tract infection [Fatal]

NARRATIVE: CASE EVENT DATE: 20200804
